FAERS Safety Report 19958349 (Version 1)
Quarter: 2021Q4

REPORT INFORMATION
  Report Type: Spontaneous
  Country: FR (occurrence: FR)
  Receive Date: 20211015
  Receipt Date: 20211015
  Transmission Date: 20220303
  Serious: Yes (Other)
  Sender: FDA-Public Use
  Company Number: None

PATIENT
  Age: 54 Year
  Sex: Female
  Weight: 81 kg

DRUGS (2)
  1. REQUIP [Suspect]
     Active Substance: ROPINIROLE HYDROCHLORIDE
     Indication: Extrapyramidal disorder
     Dosage: 8 MG, QD, 8MG*1X/JR
     Route: 048
     Dates: start: 201908
  2. BENSERAZIDE HYDROCHLORIDE\LEVODOPA [Suspect]
     Active Substance: BENSERAZIDE HYDROCHLORIDE\LEVODOPA
     Indication: Extrapyramidal disorder
     Dosage: 375 MG, QD, 125 MG* 3X/JR
     Route: 048
     Dates: start: 201908

REACTIONS (1)
  - Raynaud^s phenomenon [Recovered/Resolved]

NARRATIVE: CASE EVENT DATE: 20191201
